FAERS Safety Report 4491401-4 (Version None)
Quarter: 2004Q4

REPORT INFORMATION
  Report Type: 
  Country: None (occurrence: None)
  Receive Date: 20041101
  Receipt Date: 20041101
  Transmission Date: 20050328
  Serious: No
  Sender: FDA-Public Use
  Company Number: None

PATIENT
  Age: 45 Year
  Sex: Female
  Weight: 62 kg

DRUGS (3)
  1. GAMMAGARD [Suspect]
     Indication: HYPOGAMMAGLOBULINAEMIA
     Dosage: 25 GM IV Q 2WKS
     Route: 042
     Dates: start: 20041027
  2. GAMMAGARD [Suspect]
     Dosage: 25 GM IV Q 2WKS
     Route: 042
  3. BENADRYL [Concomitant]

REACTIONS (3)
  - CONVULSION [None]
  - INFUSION RELATED REACTION [None]
  - LOSS OF CONSCIOUSNESS [None]
